FAERS Safety Report 5512726-7 (Version None)
Quarter: 2007Q4

REPORT INFORMATION
  Report Type: 
  Country: None (occurrence: None)
  Receive Date: 20071108
  Receipt Date: 20071024
  Transmission Date: 20080405
  Serious: Yes (Hospitalization)
  Sender: FDA-Public Use
  Company Number: 2007SP003610

PATIENT
  Age: 66 Year
  Sex: Female
  Weight: 86.1834 kg

DRUGS (15)
  1. LUNESTA [Suspect]
     Indication: INSOMNIA
     Dosage: 2 MG; TIW; ORA; ; 2 MG; HS; ORAL
     Route: 048
     Dates: start: 20070101, end: 20070701
  2. LUNESTA [Suspect]
     Indication: INSOMNIA
     Dosage: 2 MG; TIW; ORA; ; 2 MG; HS; ORAL
     Route: 048
     Dates: start: 20070701, end: 20071001
  3. LISINOPRIL [Concomitant]
  4. MECLIZINE [Concomitant]
  5. TYLENOL [Concomitant]
  6. ACETYLSALICYLIC ACID SRT [Concomitant]
  7. HYDROCHLOROTHIAZIDE [Concomitant]
  8. VITAMIN B COMPLEX CAP [Concomitant]
  9. CALCIUM WITH VITAMIN D [Concomitant]
  10. PREVACID [Concomitant]
  11. VITAMIN D [Concomitant]
  12. HYDROCODONE W/APAP [Concomitant]
  13. ZITHROMAX [Concomitant]
  14. OMEPRAZOLE [Concomitant]
  15. ZINC [Concomitant]

REACTIONS (3)
  - ALOPECIA [None]
  - DISEASE RECURRENCE [None]
  - PNEUMONIA [None]
